FAERS Safety Report 9772979 (Version 2)
Quarter: 2013Q4

REPORT INFORMATION
  Report Type: Report from Study
  Country: US (occurrence: US)
  Receive Date: 20131219
  Receipt Date: 20131219
  Transmission Date: 20140711
  Serious: Yes (Hospitalization, Other)
  Sender: FDA-Public Use
  Company Number: US-ABBVIE-13P-163-1077270-00

PATIENT
  Age: 65 Year
  Sex: Male
  Weight: 88.98 kg

DRUGS (36)
  1. HUMIRA [Suspect]
     Indication: COLITIS ULCERATIVE
     Dates: start: 201211, end: 201305
  2. HUMIRA [Suspect]
     Dates: end: 201305
  3. HUMIRA [Suspect]
     Dates: start: 201305
  4. XANAX [Concomitant]
     Indication: ANXIETY
  5. AMLODIPINE [Concomitant]
     Indication: CARDIAC DISORDER
     Dosage: 5MG DAILY
  6. COZAAR [Concomitant]
     Indication: CARDIAC DISORDER
  7. LUNESTA [Concomitant]
     Indication: SLEEP DISORDER THERAPY
     Dosage: DAILY AT BEDTIME
  8. ZOCOR [Concomitant]
     Indication: BLOOD CHOLESTEROL INCREASED
     Dosage: 40MG DAILY
  9. DYCLYCLOMINE [Concomitant]
     Indication: GASTRIC DISORDER
     Dosage: DAILY
  10. LASIX [Concomitant]
     Indication: FLUID RETENTION
     Dosage: 20MG DAILY
  11. LASIX [Concomitant]
     Dosage: 20 MG - 1/2 TAB
  12. LEVSIN [Concomitant]
     Indication: GASTRIC DISORDER
     Route: 060
  13. LOMOTIL [Concomitant]
     Indication: DIARRHOEA
  14. BUPROPION HCL [Concomitant]
     Indication: PRODUCT USED FOR UNKNOWN INDICATION
     Dosage: 100MG DAILY
  15. BUPROPION HCL [Concomitant]
     Dosage: 100 MG - 1/2 TAB DAILY
  16. DEXILANT [Concomitant]
     Indication: GASTROOESOPHAGEAL REFLUX DISEASE
     Dosage: 60MG DAILY
  17. FINASTERIDE [Concomitant]
     Indication: PRODUCT USED FOR UNKNOWN INDICATION
  18. FINASTERIDE [Concomitant]
     Dosage: 1/2 TABLET DAILY
  19. ISOSORBIDE MONONITRATE [Concomitant]
     Indication: BLOOD PRESSURE
     Dosage: 30MG DAILY
  20. POTASSIUM CHLORIDE [Concomitant]
     Indication: MINERAL SUPPLEMENTATION
     Dosage: DAILY
  21. VITAMIN D [Concomitant]
     Indication: VITAMIN SUPPLEMENTATION
     Dosage: DAILY
  22. ASPIRIN [Concomitant]
     Indication: PRODUCT USED FOR UNKNOWN INDICATION
     Dosage: 81 MG DAILY
  23. NORVASC [Concomitant]
     Indication: PRODUCT USED FOR UNKNOWN INDICATION
     Dosage: 5 MG DAILY
  24. AZATHIOPRINE [Concomitant]
     Indication: PRODUCT USED FOR UNKNOWN INDICATION
     Dosage: 50 MG - 2 TABLETS DAILY
  25. BENADRYL [Concomitant]
     Indication: PRODUCT USED FOR UNKNOWN INDICATION
  26. B12 [Concomitant]
     Indication: PRODUCT USED FOR UNKNOWN INDICATION
     Dosage: 1000 MCG - 1/2 TABLET DAILY
  27. ENTOCORT [Concomitant]
     Indication: PRODUCT USED FOR UNKNOWN INDICATION
     Dosage: 3 MG DAILY
  28. HYDROCORTISONE [Concomitant]
     Indication: PRODUCT USED FOR UNKNOWN INDICATION
     Dosage: 100 MG / 60 ML
  29. HYOSCYAMINE [Concomitant]
     Indication: PRODUCT USED FOR UNKNOWN INDICATION
     Dosage: AS NEEDED
  30. ISOSORBIDE DINITRATE [Concomitant]
     Indication: PRODUCT USED FOR UNKNOWN INDICATION
     Dosage: 30 MG DAILY
  31. LOSARTAN [Concomitant]
     Indication: PRODUCT USED FOR UNKNOWN INDICATION
  32. MULTIVITAMIN [Concomitant]
     Indication: PRODUCT USED FOR UNKNOWN INDICATION
     Dosage: DAILY
  33. OSTEOBIOFLEX [Concomitant]
     Indication: PRODUCT USED FOR UNKNOWN INDICATION
  34. POTASSIUM [Concomitant]
     Indication: PRODUCT USED FOR UNKNOWN INDICATION
     Dosage: 20 MEQ 1/2 TAB
  35. TYLENOL [Concomitant]
     Indication: PRODUCT USED FOR UNKNOWN INDICATION
     Dosage: 325 MG - 2 TAB
  36. CHLORTHALIDONE [Concomitant]
     Indication: PRODUCT USED FOR UNKNOWN INDICATION
     Dosage: 20 MG DAILY

REACTIONS (10)
  - Weight decreased [Unknown]
  - Colitis ulcerative [Not Recovered/Not Resolved]
  - Abdominal pain [Not Recovered/Not Resolved]
  - Diarrhoea [Not Recovered/Not Resolved]
  - Malaise [Unknown]
  - Colitis [Not Recovered/Not Resolved]
  - Drug effect incomplete [Not Recovered/Not Resolved]
  - Asthenia [Unknown]
  - Balance disorder [Unknown]
  - Tremor [Unknown]
